FAERS Safety Report 6529566-2 (Version None)
Quarter: 2010Q1

REPORT INFORMATION
  Report Type: 
  Country: None (occurrence: None)
  Receive Date: 20100107
  Receipt Date: 20091231
  Transmission Date: 20100710
  Serious: Yes (Other)
  Sender: FDA-Public Use
  Company Number: US-JNJFOC-20100100186

PATIENT
  Sex: Female
  Weight: 77.11 kg

DRUGS (3)
  1. DURAGESIC-100 [Suspect]
     Indication: BACK PAIN
     Route: 062
     Dates: start: 20060101, end: 20091101
  2. DURAGESIC-100 [Suspect]
     Route: 062
     Dates: start: 20091101
  3. VICODIN [Concomitant]
     Indication: BREAKTHROUGH PAIN
     Route: 048
     Dates: start: 20060101

REACTIONS (8)
  - DIZZINESS [None]
  - FLUSHING [None]
  - MUSCLE SPASMS [None]
  - NAUSEA [None]
  - OSTEOPOROSIS [None]
  - PAIN [None]
  - PRODUCT QUALITY ISSUE [None]
  - TREATMENT NONCOMPLIANCE [None]
